FAERS Safety Report 4578556-8 (Version None)
Quarter: 2005Q1

REPORT INFORMATION
  Report Type: 
  Country: None (occurrence: None)
  Receive Date: 20050209
  Receipt Date: 20050201
  Transmission Date: 20050727
  Serious: Yes (Hospitalization)
  Sender: FDA-Public Use
  Company Number: TCI2004A03291

PATIENT
  Age: 64 Year
  Sex: Male

DRUGS (13)
  1. PIOGLITAZONE HYDROCHLORIDE (PIOGLITAZONE HYDROCHLORIDE) [Suspect]
     Indication: DIABETES MELLITUS NON-INSULIN-DEPENDENT
     Dosage: SEE IMAGE
     Route: 048
     Dates: start: 20040325, end: 20040324
  2. PIOGLITAZONE HYDROCHLORIDE (PIOGLITAZONE HYDROCHLORIDE) [Suspect]
     Indication: DIABETES MELLITUS NON-INSULIN-DEPENDENT
     Dosage: SEE IMAGE
     Route: 048
     Dates: start: 20040325, end: 20040518
  3. PIOGLITAZONE HYDROCHLORIDE (PIOGLITAZONE HYDROCHLORIDE) [Suspect]
     Indication: DIABETES MELLITUS NON-INSULIN-DEPENDENT
     Dosage: SEE IMAGE
     Route: 048
     Dates: start: 20040519, end: 20040908
  4. VOGLIBOSE (CODE NO9T BROKEN) (VOGLIBOSE) [Suspect]
     Indication: DIABETES MELLITUS NON-INSULIN-DEPENDENT
     Dosage: SEE IMAGE
     Route: 048
     Dates: start: 20040324, end: 20040324
  5. VOGLIBOSE (CODE NO9T BROKEN) (VOGLIBOSE) [Suspect]
     Indication: DIABETES MELLITUS NON-INSULIN-DEPENDENT
     Dosage: SEE IMAGE
     Route: 048
     Dates: start: 20040325, end: 20040908
  6. BASEN TABLETS 0.2 (VOGLIBOSE) [Suspect]
     Indication: DIABETES MELLITUS NON-INSULIN-DEPENDENT
     Dosage: SEE IMAGE
     Route: 048
     Dates: start: 20040309, end: 20040323
  7. BASEN TABLETS 0.2 (VOGLIBOSE) [Suspect]
     Indication: DIABETES MELLITUS NON-INSULIN-DEPENDENT
     Dosage: SEE IMAGE
     Route: 048
     Dates: start: 20040324, end: 20040324
  8. BASEN TABLETS 0.2 (VOGLIBOSE) [Suspect]
     Indication: DIABETES MELLITUS NON-INSULIN-DEPENDENT
     Dosage: SEE IMAGE
     Route: 048
     Dates: start: 20040909
  9. ALLOPURINOL [Concomitant]
  10. VIAGRA [Concomitant]
  11. EUGLUCON (GLIBENCLAMIDE) [Concomitant]
  12. AMARYL [Concomitant]
  13. URINORM (BENZBROMARONE) [Concomitant]

REACTIONS (10)
  - ALANINE AMINOTRANSFERASE INCREASED [None]
  - ASPARTATE AMINOTRANSFERASE INCREASED [None]
  - BILE DUCT CANCER [None]
  - BILE DUCT OBSTRUCTION [None]
  - BLOOD LACTATE DEHYDROGENASE INCREASED [None]
  - GAMMA BUTYRIC DEHYDROGENASE INCREASED [None]
  - JAUNDICE CHOLESTATIC [None]
  - MALAISE [None]
  - ORAL INTAKE REDUCED [None]
  - PYREXIA [None]
